FAERS Safety Report 7009938-2 (Version None)
Quarter: 2010Q3

REPORT INFORMATION
  Report Type: 
  Country: None (occurrence: None)
  Receive Date: 20100921
  Receipt Date: 20100413
  Transmission Date: 20110219
  Serious: Yes (Disabling)
  Sender: FDA-Public Use
  Company Number: APP200900406

PATIENT
  Age: 48 Year
  Sex: Male
  Weight: 81.6475 kg

DRUGS (4)
  1. XYLOCAINE [Suspect]
     Indication: MUSCULOSKELETAL PAIN
     Dosage: 120 ML, CONTINUOUS VIA PUMP, INTRA-ARTICULAR; 25 ML, INTRAVENOUS BOLUS
     Route: 014
     Dates: start: 20040413
  2. XYLOCAINE [Suspect]
     Indication: MUSCULOSKELETAL PAIN
     Dosage: 120 ML, CONTINUOUS VIA PUMP, INTRA-ARTICULAR; 25 ML, INTRAVENOUS BOLUS
     Route: 014
     Dates: start: 20040413
  3. NAROPIN [Suspect]
     Indication: NERVE BLOCK
     Dosage: 20 ML, WITH 0.3 MG BUPRENORPHINE, INJECTION
     Dates: start: 20040413
  4. ANCEF [Concomitant]

REACTIONS (6)
  - JOINT INJURY [None]
  - JOINT RANGE OF MOTION DECREASED [None]
  - MOVEMENT DISORDER [None]
  - MUSCULOSKELETAL PAIN [None]
  - OSTEOARTHRITIS [None]
  - ROTATOR CUFF SYNDROME [None]
